FAERS Safety Report 6641279-5 (Version None)
Quarter: 2010Q1

REPORT INFORMATION
  Report Type: 
  Country: None (occurrence: None)
  Receive Date: 20100318
  Receipt Date: 20100310
  Transmission Date: 20100710
  Serious: Yes (Hospitalization)
  Sender: FDA-Public Use
  Company Number: FR-BAXTER-2010BH006905

PATIENT
  Age: 8 Year
  Sex: Female

DRUGS (15)
  1. HOLOXAN BAXTER [Suspect]
     Indication: RHABDOMYOSARCOMA
     Route: 042
     Dates: start: 20100212, end: 20100213
  2. HOLOXAN BAXTER [Suspect]
     Route: 042
     Dates: start: 20090815, end: 20090815
  3. HOLOXAN BAXTER [Suspect]
     Route: 042
     Dates: start: 20090816, end: 20090816
  4. HOLOXAN BAXTER [Suspect]
     Route: 042
     Dates: start: 20090911, end: 20090911
  5. HOLOXAN BAXTER [Suspect]
     Route: 042
     Dates: start: 20090912, end: 20090912
  6. HOLOXAN BAXTER [Suspect]
     Route: 042
     Dates: start: 20091004, end: 20091004
  7. HOLOXAN BAXTER [Suspect]
     Route: 042
     Dates: start: 20091005, end: 20091005
  8. HOLOXAN BAXTER [Suspect]
     Route: 042
     Dates: start: 20091201, end: 20091201
  9. HOLOXAN BAXTER [Suspect]
     Route: 042
     Dates: start: 20091226, end: 20091226
  10. HOLOXAN BAXTER [Suspect]
     Route: 042
     Dates: start: 20100119, end: 20100119
  11. MESNA [Suspect]
     Indication: RHABDOMYOSARCOMA
     Route: 065
     Dates: start: 20090101
  12. VINCRISTINE SULFATE [Suspect]
     Indication: RHABDOMYOSARCOMA
     Route: 065
     Dates: start: 20090815, end: 20100212
  13. DOXORUBICIN HCL [Suspect]
     Indication: RHABDOMYOSARCOMA
     Route: 065
     Dates: start: 20090815
  14. ACTINOMYCINE [Suspect]
     Indication: RHABDOMYOSARCOMA
     Route: 065
     Dates: start: 20090815, end: 20100212
  15. RADIOTHERAPY [Suspect]
     Indication: RHABDOMYOSARCOMA
     Route: 065
     Dates: start: 20091221

REACTIONS (3)
  - CONFUSIONAL STATE [None]
  - VERTIGO [None]
  - VOMITING [None]
